FAERS Safety Report 5817728-9 (Version None)
Quarter: 2008Q3

REPORT INFORMATION
  Report Type: 
  Country: None (occurrence: None)
  Receive Date: 20080722
  Receipt Date: 20080715
  Transmission Date: 20090109
  Serious: Yes (Other)
  Sender: FDA-Public Use
  Company Number: PHEH2008US06292

PATIENT
  Sex: Female

DRUGS (1)
  1. VIVELLE-DOT [Suspect]
     Dosage: 0.1 MG DAILY, UNK
     Route: 062

REACTIONS (1)
  - DEPRESSION SUICIDAL [None]
